FAERS Safety Report 24686417 (Version 2)
Quarter: 2024Q4

REPORT INFORMATION
  Report Type: Report from Study
  Country: US (occurrence: US)
  Receive Date: 20241202
  Receipt Date: 20241226
  Transmission Date: 20250114
  Serious: Yes (Hospitalization, Other)
  Sender: ABBVIE
  Company Number: US-ABBVIE-6024737

PATIENT
  Age: 58 Year
  Sex: Female
  Weight: 58.966 kg

DRUGS (5)
  1. RINVOQ [Suspect]
     Active Substance: UPADACITINIB
     Indication: Rheumatoid arthritis
     Dosage: FORM STRENGTH: 15 MILLIGRAM
     Route: 048
     Dates: start: 20211201
  2. ROPINIROLE [Concomitant]
     Active Substance: ROPINIROLE
     Indication: Restless legs syndrome
     Dosage: FORM STRENGTH: 3 MILLIGRAM
  3. MELOXICAM [Concomitant]
     Active Substance: MELOXICAM
     Indication: Rheumatoid arthritis
     Dosage: FORM STRENGTH: 15 MILLIGRAM
  4. PREDNISONE [Concomitant]
     Active Substance: PREDNISONE
     Indication: Rheumatoid arthritis
     Dosage: FORM STRENGTH: 10 MILLIGRAM
  5. GABAPENTIN AN [Concomitant]
     Indication: Neuralgia
     Dosage: DOSE TEXT: 900MG - 25MG

REACTIONS (11)
  - Loss of consciousness [Recovered/Resolved]
  - Pneumonia [Recovered/Resolved]
  - Influenza [Recovered/Resolved]
  - Urinary tract infection [Recovered/Resolved]
  - Dyspnoea [Recovered/Resolved]
  - Arthralgia [Not Recovered/Not Resolved]
  - Oral mucosal blistering [Recovered/Resolved]
  - Fall [Recovered/Resolved]
  - Memory impairment [Recovered/Resolved]
  - Illness [Recovered/Resolved]
  - Oxygen saturation decreased [Recovered/Resolved]

NARRATIVE: CASE EVENT DATE: 20241101
